FAERS Safety Report 24869738 (Version 1)
Quarter: 2025Q1

REPORT INFORMATION
  Report Type: Report from Study
  Country: US (occurrence: US)
  Receive Date: 20250121
  Receipt Date: 20250121
  Transmission Date: 20250408
  Serious: Yes (Other)
  Sender: MYLAN
  Company Number: US-MYLANLABS-2025M1004037

PATIENT
  Age: 35 Year
  Sex: Female

DRUGS (3)
  1. LIPITOR [Suspect]
     Active Substance: ATORVASTATIN CALCIUM
     Indication: Blood cholesterol increased
     Route: 065
  2. LORBRENA [Concomitant]
     Active Substance: LORLATINIB
     Indication: Anaplastic lymphoma kinase gene mutation
     Route: 065
     Dates: start: 20241120
  3. LORBRENA [Concomitant]
     Active Substance: LORLATINIB
     Indication: Non-small cell lung cancer

REACTIONS (6)
  - Pericarditis [Unknown]
  - Slow speech [Unknown]
  - Chest discomfort [Unknown]
  - Restless arm syndrome [Recovered/Resolved]
  - Chest pain [Unknown]
  - Contraindicated product administered [Unknown]

NARRATIVE: CASE EVENT DATE: 20250101
